FAERS Safety Report 6649182-1 (Version None)
Quarter: 2010Q1

REPORT INFORMATION
  Report Type: 
  Country: None (occurrence: None)
  Receive Date: 20100324
  Receipt Date: 20100316
  Transmission Date: 20100710
  Serious: Yes (Hospitalization)
  Sender: FDA-Public Use
  Company Number: B0626081A

PATIENT
  Sex: Male

DRUGS (4)
  1. AUGMENTIN [Suspect]
     Indication: DRUG USE FOR UNKNOWN INDICATION
     Dosage: 2G PER DAY
     Route: 048
     Dates: start: 20090213, end: 20090215
  2. BISOLVON [Concomitant]
     Dates: start: 20090213, end: 20090215
  3. FROBEN [Concomitant]
     Dates: start: 20090213, end: 20090215
  4. TACHIPIRINA [Concomitant]

REACTIONS (3)
  - HYPERAEMIA [None]
  - LIP OEDEMA [None]
  - URTICARIA [None]
